FAERS Safety Report 15786536 (Version 5)
Quarter: 2021Q3

REPORT INFORMATION
  Report Type: Spontaneous
  Country: US (occurrence: US)
  Receive Date: 20190103
  Receipt Date: 20210906
  Transmission Date: 20211014
  Serious: Yes (Other)
  Sender: FDA-Public Use
  Company Number: US-PFIZER INC-2018533830

PATIENT
  Age: 75 Year
  Sex: Female
  Weight: 68.04 kg

DRUGS (1)
  1. LIOTHYRONINE SODIUM. [Suspect]
     Active Substance: LIOTHYRONINE SODIUM
     Dosage: UNK

REACTIONS (4)
  - Sarcoma [Unknown]
  - Fatigue [Unknown]
  - Drug ineffective [Unknown]
  - Weight increased [Unknown]
